FAERS Safety Report 14675729 (Version 1)
Quarter: 2018Q1

REPORT INFORMATION
  Report Type: Report from Study
  Country: US (occurrence: US)
  Receive Date: 20180323
  Receipt Date: 20180323
  Transmission Date: 20180509
  Serious: No
  Sender: FDA-Public Use
  Company Number: US-REGENERON PHARMACEUTICALS, INC.-2017-26480

PATIENT

DRUGS (1)
  1. ARCALYST [Suspect]
     Active Substance: RILONACEPT
     Indication: AUTOINFLAMMATORY DISEASE
     Dosage: 160 MG, WEEKLY
     Route: 058

REACTIONS (2)
  - Injection site pruritus [Unknown]
  - Skin discolouration [Unknown]
